FAERS Safety Report 11101001 (Version 4)
Quarter: 2015Q2

REPORT INFORMATION
  Report Type: Spontaneous
  Country: US (occurrence: US)
  Receive Date: 20150508
  Receipt Date: 20150625
  Transmission Date: 20150821
  Serious: Yes (Other)
  Sender: FDA-Public Use
  Company Number: US-GLAXOSMITHKLINE-A0664604A

PATIENT
  Sex: Female

DRUGS (10)
  1. ADVAIR HFA [Suspect]
     Active Substance: FLUTICASONE PROPIONATE\SALMETEROL XINAFOATE
     Indication: ASTHMA
     Dosage: 100/50
     Route: 055
     Dates: start: 2006
  2. ALLEGRA [Concomitant]
     Active Substance: FEXOFENADINE HYDROCHLORIDE
  3. COMBIVENT [Concomitant]
     Active Substance: ALBUTEROL SULFATE\IPRATROPIUM BROMIDE
  4. OMEGA-3-ACID ETHYL ESTERS. [Concomitant]
     Active Substance: OMEGA-3-ACID ETHYL ESTERS
  5. ADVAIR DISKUS [Suspect]
     Active Substance: FLUTICASONE PROPIONATE\SALMETEROL XINAFOATE
     Indication: CHRONIC OBSTRUCTIVE PULMONARY DISEASE
     Dosage: UNK
  6. LIPITOR [Concomitant]
     Active Substance: ATORVASTATIN CALCIUM
  7. ADVAIR DISKUS [Suspect]
     Active Substance: FLUTICASONE PROPIONATE\SALMETEROL XINAFOATE
     Dosage: UNK
  8. CLONIDINE HYDROCHLORIDE. [Concomitant]
     Active Substance: CLONIDINE HYDROCHLORIDE
  9. SINGULAIR [Concomitant]
     Active Substance: MONTELUKAST SODIUM
  10. COZAR [Concomitant]

REACTIONS (4)
  - White blood cell count decreased [Unknown]
  - Tremor [Unknown]
  - Memory impairment [Unknown]
  - Dementia Alzheimer^s type [Unknown]

NARRATIVE: CASE EVENT DATE: 2007
